FAERS Safety Report 6367464-8 (Version None)
Quarter: 2009Q3

REPORT INFORMATION
  Report Type: 
  Country: None (occurrence: None)
  Receive Date: 20090921
  Receipt Date: 20090911
  Transmission Date: 20100115
  Serious: Yes (Hospitalization)
  Sender: FDA-Public Use
  Company Number: B0593667A

PATIENT
  Sex: Female
  Weight: 77.3 kg

DRUGS (4)
  1. LAPATINIB [Suspect]
     Indication: BREAST CANCER
     Dosage: 1500MG PER DAY
     Route: 048
     Dates: start: 20090615
  2. TINZAPARIN [Concomitant]
     Dosage: 14000U PER DAY
     Route: 058
     Dates: start: 20090301
  3. VALPROATE SODIUM [Concomitant]
     Indication: EPILEPSY
     Dosage: 500MG PER DAY
     Route: 048
     Dates: start: 19590101
  4. LETROZOLE [Concomitant]
     Indication: BREAST CANCER
     Dosage: 2.5MG PER DAY
     Route: 048
     Dates: start: 20090601

REACTIONS (3)
  - CHEST PAIN [None]
  - OEDEMA PERIPHERAL [None]
  - PULMONARY EMBOLISM [None]
